FAERS Safety Report 7351592-4 (Version None)
Quarter: 2011Q1

REPORT INFORMATION
  Report Type: 
  Country: None (occurrence: None)
  Receive Date: 20110314
  Receipt Date: 20110303
  Transmission Date: 20110831
  Serious: Yes (Hospitalization, Other)
  Sender: FDA-Public Use
  Company Number: FR-BRISTOL-MYERS SQUIBB COMPANY-15489768

PATIENT
  Age: 82 Year
  Sex: Male
  Weight: 80 kg

DRUGS (8)
  1. TENORMIN [Concomitant]
     Indication: HYPERTENSION
     Dosage: 1 DF: 1 TAB 100 MG TENORMINE 100
     Dates: end: 20100901
  2. ZYLORIC [Concomitant]
     Dosage: 1 DF: 1 TAB 200 MG ZYLORIC 200MG
     Dates: start: 19900101
  3. AMAREL [Concomitant]
     Indication: DIABETES MELLITUS
     Dosage: 1 DF: 1 TAB  AMAREL 1 MG
     Dates: start: 20070101
  4. QUESTRAN [Suspect]
     Dosage: 1 DF: 2 SACHETS 08FEB2011.
     Dates: start: 19771101
  5. TAREG [Concomitant]
     Indication: HYPERTENSION
     Dosage: 1 DF: 1 TAB  TAREG 40 MG
  6. MESTINON [Concomitant]
     Indication: MUSCULAR WEAKNESS
     Dosage: 1 DF: 3-4 TAB
     Dates: start: 20100901
  7. ANTIVITAMIN K [Suspect]
  8. COUMADIN [Suspect]
     Dosage: 7.5MG:21JAN11.28JAN11.8MG:02FEB11.08FEB11.16FEB11.
     Dates: start: 20101214

REACTIONS (6)
  - DRUG ADMINISTRATION ERROR [None]
  - INTERNATIONAL NORMALISED RATIO DECREASED [None]
  - MUSCULAR WEAKNESS [None]
  - PULMONARY EMBOLISM [None]
  - THERAPEUTIC RESPONSE UNEXPECTED [None]
  - THYMOMA [None]
